FAERS Safety Report 10785048 (Version 1)
Quarter: 2015Q1

REPORT INFORMATION
  Report Type: Spontaneous
  Country: US (occurrence: None)
  Receive Date: 20150209
  Receipt Date: 20150209
  Transmission Date: 20150721
  Serious: Yes (Death)
  Sender: FDA-Public Use
  Company Number: UNT-2014-004183

PATIENT
  Age: 83 Year
  Sex: Female
  Weight: 56.2 kg

DRUGS (1)
  1. REMODULIN [Suspect]
     Active Substance: TREPROSTINIL
     Indication: PULMONARY ARTERIAL HYPERTENSION
     Dosage: 0.018 UG/KG, CONTINUING, IV DRIP
     Route: 041
     Dates: start: 20130423

REACTIONS (1)
  - Pulmonary hypertension [None]
